FAERS Safety Report 5427943-4 (Version None)
Quarter: 2007Q3

REPORT INFORMATION
  Report Type: 
  Country: None (occurrence: None)
  Receive Date: 20070731
  Receipt Date: 20070410
  Transmission Date: 20080115
  Serious: No
  Sender: FDA-Public Use
  Company Number: US200704002174

PATIENT
  Age: 60 Year
  Sex: Male
  Weight: 156.5 kg

DRUGS (14)
  1. BYETTA [Suspect]
     Indication: TYPE 2 DIABETES MELLITUS
     Dosage: 5 UG, 2/D, SUBCUTANEOUS : 10 UG, 2/D, SUBCUTANEOUS
     Route: 058
     Dates: start: 20070409, end: 20070410
  2. BYETTA [Suspect]
     Indication: TYPE 2 DIABETES MELLITUS
     Dosage: 5 UG, 2/D, SUBCUTANEOUS : 10 UG, 2/D, SUBCUTANEOUS
     Route: 058
     Dates: start: 20070301
  3. EXENATIDE 10MCG PEN, DISPOSABLE DEVICE (EXENATIDE PEN (10MCG)) PEN,DIS [Concomitant]
  4. METFORMIN HCL [Concomitant]
  5. ASPIRIN [Concomitant]
  6. METOPROLOL TARTRATE [Concomitant]
  7. LISINOPRIL [Concomitant]
  8. CADUET(AMLODIPINE BESILATE, ATORVASTATIN CALCIUM) [Concomitant]
  9. CLONIDINE [Concomitant]
  10. NIASPAN [Concomitant]
  11. K-DUR 10 [Concomitant]
  12. NEXIUM [Concomitant]
  13. ZOLOFT [Concomitant]
  14. AMILORIDE HYDROCHLORIDE [Concomitant]

REACTIONS (8)
  - BLOOD GLUCOSE DECREASED [None]
  - CHEST DISCOMFORT [None]
  - DIZZINESS [None]
  - DYSPNOEA [None]
  - ERUCTATION [None]
  - HEADACHE [None]
  - NAUSEA [None]
  - PAIN IN JAW [None]
